FAERS Safety Report 16883874 (Version 1)
Quarter: 2019Q4

REPORT INFORMATION
  Report Type: Spontaneous
  Country: CO (occurrence: CO)
  Receive Date: 20191004
  Receipt Date: 20191004
  Transmission Date: 20200122
  Serious: Yes (Hospitalization)
  Sender: FDA-Public Use
  Company Number: CO-PFIZER INC-2019427776

PATIENT
  Age: 57 Year
  Sex: Female

DRUGS (1)
  1. REAMPLA [Suspect]
     Active Substance: PALBOCICLIB
     Dosage: 125 MG, FOR 21 DAYS
     Route: 048

REACTIONS (4)
  - Decreased immune responsiveness [Unknown]
  - Diarrhoea [Unknown]
  - Leukopenia [Unknown]
  - Anaemia [Unknown]
